FAERS Safety Report 12294047 (Version 1)
Quarter: 2016Q2

REPORT INFORMATION
  Report Type: Other
  Country: PT (occurrence: PT)
  Receive Date: 20160422
  Receipt Date: 20160422
  Transmission Date: 20160815
  Serious: Yes (Other)
  Sender: FDA-Public Use
  Company Number: PT-ACTELION-A-CH2010-40427

PATIENT
  Age: 3 Year
  Sex: Male

DRUGS (1)
  1. ZAVESCA [Suspect]
     Active Substance: MIGLUSTAT
     Indication: NIEMANN-PICK DISEASE
     Route: 048

REACTIONS (13)
  - Niemann-Pick disease [Unknown]
  - Seizure [Unknown]
  - Pyramidal tract syndrome [Unknown]
  - Muscle spasticity [Unknown]
  - Skin lesion [Unknown]
  - Visual field defect [Unknown]
  - Waxy flexibility [Unknown]
  - Disease progression [Unknown]
  - Cataplexy [Unknown]
  - Dystonia [Unknown]
  - Feeding disorder [Unknown]
  - Weight gain poor [Unknown]
  - Concomitant disease aggravated [Unknown]
